FAERS Safety Report 19992495 (Version 3)
Quarter: 2021Q4

REPORT INFORMATION
  Report Type: Spontaneous
  Country: IT (occurrence: IT)
  Receive Date: 20211026
  Receipt Date: 20211110
  Transmission Date: 20220304
  Serious: Yes (Hospitalization, Other)
  Sender: FDA-Public Use
  Company Number: IT-AUROBINDO-AUR-APL-2021-043002

PATIENT
  Age: 47 Year
  Sex: Female

DRUGS (5)
  1. ZOLPIDEM [Suspect]
     Active Substance: ZOLPIDEM TARTRATE
     Indication: Major depression
     Dosage: 120?140 MG/DAY
     Route: 048
  2. ZOLPIDEM [Suspect]
     Active Substance: ZOLPIDEM TARTRATE
     Indication: Personality disorder
  3. CLONAZEPAM [Concomitant]
     Active Substance: CLONAZEPAM
     Indication: Sedative therapy
     Dosage: 2.5 MILLIGRAM, DAILY
     Route: 065
  4. OLANZAPINE [Concomitant]
     Active Substance: OLANZAPINE
     Indication: Euphoric mood
     Dosage: 2.5 MILLIGRAM, DAILY
     Route: 065
  5. OLANZAPINE [Concomitant]
     Active Substance: OLANZAPINE
     Indication: Anxiolytic therapy

REACTIONS (7)
  - Drug use disorder [Unknown]
  - Drug abuse [Unknown]
  - Seizure [Unknown]
  - Drug withdrawal convulsions [Recovered/Resolved]
  - Intentional product misuse [Unknown]
  - Anxiety [Unknown]
  - Euphoric mood [Unknown]
